FAERS Safety Report 20070083 (Version 1)
Quarter: 2021Q4

REPORT INFORMATION
  Report Type: Report from Study
  Country: US (occurrence: US)
  Receive Date: 20211115
  Receipt Date: 20211115
  Transmission Date: 20220303
  Serious: No
  Sender: FDA-Public Use
  Company Number: US-Ipsen Biopharmaceuticals, Inc.-2021-28000

PATIENT
  Age: 75 Year
  Sex: Female

DRUGS (1)
  1. SOMATULINE DEPOT [Suspect]
     Active Substance: LANREOTIDE ACETATE
     Indication: Acromegaly
     Dosage: 60MG
     Route: 058
     Dates: start: 20210722

REACTIONS (1)
  - Fatigue [Not Recovered/Not Resolved]
